FAERS Safety Report 6129143-1 (Version None)
Quarter: 2009Q1

REPORT INFORMATION
  Report Type: 
  Country: None (occurrence: None)
  Receive Date: 20090323
  Receipt Date: 20090323
  Transmission Date: 20090719
  Serious: Yes (Hospitalization, Other)
  Sender: FDA-Public Use
  Company Number: None

PATIENT
  Sex: Female
  Weight: 63 kg

DRUGS (1)
  1. GAMMAGARD [Suspect]
     Indication: POLYMYOSITIS
     Dosage: 60 GM X1 IV DRIP
     Route: 041
     Dates: start: 20090214, end: 20090214

REACTIONS (4)
  - BACK PAIN [None]
  - DRUG INEFFECTIVE [None]
  - MENINGITIS ASEPTIC [None]
  - NECK PAIN [None]
